FAERS Safety Report 6652416-0 (Version None)
Quarter: 2010Q1

REPORT INFORMATION
  Report Type: 
  Country: None (occurrence: None)
  Receive Date: 20100325
  Receipt Date: 20100317
  Transmission Date: 20100710
  Serious: Yes (Hospitalization)
  Sender: FDA-Public Use
  Company Number: US-AMGEN-QUU400382

PATIENT
  Sex: Female

DRUGS (3)
  1. ENBREL [Suspect]
     Indication: RHEUMATOID ARTHRITIS
     Route: 058
     Dates: start: 20090501
  2. PLAQUENIL [Concomitant]
     Route: 048
  3. METHOTREXATE [Concomitant]

REACTIONS (11)
  - ARTHRITIS [None]
  - BLOOD URINE PRESENT [None]
  - COLITIS [None]
  - CONSTIPATION [None]
  - FOOT FRACTURE [None]
  - HAEMATOCHEZIA [None]
  - JOINT DESTRUCTION [None]
  - OSTEOPOROSIS [None]
  - ROAD TRAFFIC ACCIDENT [None]
  - SINUSITIS [None]
  - SPINAL FRACTURE [None]
